FAERS Safety Report 8374596-1 (Version None)
Quarter: 2012Q2

REPORT INFORMATION
  Report Type: 
  Country: None (occurrence: None)
  Receive Date: 20120521
  Receipt Date: 20120507
  Transmission Date: 20120825
  Serious: Yes (Other)
  Sender: FDA-Public Use
  Company Number: US-JNJFOC-20120515002

PATIENT

DRUGS (4)
  1. ETOPOSIDE [Suspect]
     Indication: SARCOMA
     Route: 065
  2. VINCRISTINE [Suspect]
     Indication: SARCOMA
     Route: 065
  3. DOXORUBICIN HCL [Suspect]
     Indication: SARCOMA
     Route: 042
  4. CYCLOPHOSPHAMIDE [Suspect]
     Indication: SARCOMA
     Route: 065

REACTIONS (3)
  - CHOLECYSTITIS [None]
  - SEPTIC SHOCK [None]
  - OFF LABEL USE [None]
